FAERS Safety Report 12630749 (Version 4)
Quarter: 2016Q4

REPORT INFORMATION
  Report Type: Spontaneous
  Country: US (occurrence: US)
  Receive Date: 20160808
  Receipt Date: 20161128
  Transmission Date: 20170207
  Serious: No
  Sender: FDA-Public Use
  Company Number: US-PFIZER INC-2016373123

PATIENT
  Age: 58 Year
  Sex: Male
  Weight: 95.25 kg

DRUGS (17)
  1. DOCUSATE SODIUM. [Concomitant]
     Active Substance: DOCUSATE SODIUM
     Dosage: 100 MG, AS NEEDED (B.I.D PRN)
     Route: 048
  2. LISINOPRIL. [Concomitant]
     Active Substance: LISINOPRIL
     Dosage: 40 MG, DAILY
     Route: 048
  3. LIPITOR [Concomitant]
     Active Substance: ATORVASTATIN CALCIUM
     Dosage: 80 MG, DAILY
     Route: 048
  4. NASONEX [Concomitant]
     Active Substance: MOMETASONE FUROATE
     Dosage: UNK UNK, AS NEEDED (50 MCG/ACT TAKE AS DIRECTED)
  5. SUTENT [Suspect]
     Active Substance: SUNITINIB MALATE
     Indication: METASTATIC RENAL CELL CARCINOMA
     Dosage: 50 MG, CYCLIC (1 CAP D1-D28 Q42D)  (1 TAB DAILY 4 WEEKS ON 2 WEEKS OFF )
     Route: 048
     Dates: start: 20160720
  6. AMITRIPTYLINE HCL [Concomitant]
     Active Substance: AMITRIPTYLINE
     Dosage: UNK UNK, 1X/DAY (1 - 2 (25 MG) TABLET ORAL AT BEDTIME)
     Route: 048
  7. MIRALAX [Concomitant]
     Active Substance: POLYETHYLENE GLYCOL 3350
     Dosage: UNK UNK, AS NEEDED (1 - 2 TSP POWDER)
     Route: 048
  8. ANUSOL-HC [Concomitant]
     Dosage: UNK UNK, AS NEEDED (2.5 % B.I.D PRN)
     Route: 054
  9. AMBIEN CR [Concomitant]
     Active Substance: ZOLPIDEM TARTRATE
     Dosage: 12.5 MG, AS NEEDED (AT BEDTIME)
     Route: 048
  10. LANSOPRAZOLE. [Concomitant]
     Active Substance: LANSOPRAZOLE
     Dosage: 30 MG, DAILY
     Route: 048
  11. SERTRALINE HCL [Concomitant]
     Active Substance: SERTRALINE HYDROCHLORIDE
     Dosage: 150 MG, DAILY
     Route: 048
  12. SINGULAIR [Concomitant]
     Active Substance: MONTELUKAST SODIUM
     Dosage: 10 MG, DAILY
     Route: 048
  13. SUTENT [Suspect]
     Active Substance: SUNITINIB MALATE
     Dosage: 50 MG, CYCLIC (1 CAP D1-D28 Q 42 D)  (1 TAB DAILY 4 WEEKS ON 2 WEEKS OFF )
     Route: 048
     Dates: start: 20160720
  14. SUTENT [Suspect]
     Active Substance: SUNITINIB MALATE
     Dosage: 50 MG, CYCLIC, (D1-D28QOFF 2WEEKS/ QD X4 WEEKS THEN OFF 2 WEEKS)
     Route: 048
     Dates: start: 20160725, end: 20161101
  15. OXYCODONE HYDROCHLORIDE. [Concomitant]
     Active Substance: OXYCODONE HYDROCHLORIDE
     Dosage: UNK
     Dates: start: 20160720
  16. CARDURA [Concomitant]
     Active Substance: DOXAZOSIN MESYLATE
     Dosage: 8 MG, 1X/DAY (AT BEDTIME)
     Route: 048
  17. WELLBUTRIN XL [Concomitant]
     Active Substance: BUPROPION HYDROCHLORIDE
     Dosage: 150 MG, DAILY
     Route: 048

REACTIONS (3)
  - Neoplasm progression [Unknown]
  - Feeling abnormal [Unknown]
  - Pain [Unknown]
